FAERS Safety Report 8160108-4 (Version None)
Quarter: 2012Q1

REPORT INFORMATION
  Report Type: 
  Country: None (occurrence: None)
  Receive Date: 20120223
  Receipt Date: 20120221
  Transmission Date: 20120608
  Serious: Yes (Other)
  Sender: FDA-Public Use
  Company Number: US-PFIZER INC-2012046105

PATIENT
  Sex: Female
  Weight: 64 kg

DRUGS (18)
  1. ZYRTEC [Concomitant]
     Dosage: UNK
  2. ACETYLSALICYLIC ACID [Concomitant]
     Dosage: 325 MG, UNK
  3. VITAMIN D [Concomitant]
     Dosage: UNK, 1X/DAY
  4. NEXIUM [Concomitant]
     Dosage: 40 MG, 1X/DAY
  5. NORVASC [Concomitant]
     Dosage: 2.5 MG, 1X/DAY
  6. HYDROCODONE [Concomitant]
     Dosage: UNK, 3X/DAY
  7. CHANTIX [Suspect]
     Indication: SMOKING CESSATION THERAPY
     Dosage: 0.5 MG, 1X/DAY
     Route: 048
  8. SINGULAIR [Concomitant]
     Dosage: 10 MG, 1X/DAY
  9. QVAR 40 [Concomitant]
     Dosage: 80 UG, 2X/DAY
  10. ZOCOR [Concomitant]
     Dosage: 20 MG, AS NEEDED
  11. SPIRONOLACTONE [Concomitant]
     Dosage: 25 MG, 2X/DAY
  12. LORAZEPAM [Concomitant]
     Dosage: UNK
  13. PSEUDOEPHEDRINE [Concomitant]
     Dosage: UNK, 2X/DAY
  14. SPIRIVA [Concomitant]
     Dosage: 18 UG, 1X/DAY
  15. CHANTIX [Suspect]
     Dosage: UNK
     Route: 048
  16. FLEXERIL [Concomitant]
     Dosage: 10 MG, 3X/DAY
  17. BACLOFEN [Concomitant]
     Dosage: 20 MG, 4X/DAY
  18. POTASSIUM [Concomitant]
     Dosage: 550 MG, 1X/DAY

REACTIONS (3)
  - BLOOD GLUCOSE INCREASED [None]
  - ABNORMAL DREAMS [None]
  - NIGHTMARE [None]
